FAERS Safety Report 26185532 (Version 1)
Quarter: 2025Q4

REPORT INFORMATION
  Report Type: Spontaneous
  Country: US (occurrence: None)
  Receive Date: 20251222
  Receipt Date: 20251222
  Transmission Date: 20260117
  Serious: No
  Sender: Alvotech
  Company Number: None

PATIENT
  Sex: Female

DRUGS (1)
  1. SIMLANDI [Suspect]
     Active Substance: ADALIMUMAB-RYVK
     Indication: Product used for unknown indication
     Dates: start: 20251019

REACTIONS (3)
  - Hypersensitivity [Unknown]
  - Product substitution issue [Unknown]
  - Skin ulcer [Unknown]

NARRATIVE: CASE EVENT DATE: 20251104
